FAERS Safety Report 14237625 (Version 1)
Quarter: 2017Q4

REPORT INFORMATION
  Report Type: Spontaneous
  Country: CA (occurrence: CA)
  Receive Date: 20171129
  Receipt Date: 20171129
  Transmission Date: 20180321
  Serious: Yes (Other)
  Sender: FDA-Public Use
  Company Number: CA-AMGEN-CANSP2017165169

PATIENT
  Age: 70 Year
  Sex: Female
  Weight: 58.5 kg

DRUGS (1)
  1. PROLIA [Suspect]
     Active Substance: DENOSUMAB
     Indication: OSTEOPOROSIS POSTMENOPAUSAL
     Dosage: 60 MG/ML, Q6MO
     Route: 058
     Dates: start: 2013, end: 201703

REACTIONS (17)
  - Rash erythematous [Unknown]
  - Nail disorder [Unknown]
  - Pain in jaw [Recovering/Resolving]
  - Joint range of motion decreased [Unknown]
  - Adverse event [Unknown]
  - Vertigo [Unknown]
  - Asthenia [Unknown]
  - Arthralgia [Recovering/Resolving]
  - Syncope [Unknown]
  - Dry skin [Unknown]
  - Back pain [Unknown]
  - Cough [Recovering/Resolving]
  - Pruritus [Unknown]
  - Decreased appetite [Unknown]
  - Drug dose omission [Unknown]
  - Musculoskeletal pain [Unknown]
  - Fatigue [Unknown]

NARRATIVE: CASE EVENT DATE: 2017
